FAERS Safety Report 6647504-9 (Version None)
Quarter: 2010Q1

REPORT INFORMATION
  Report Type: 
  Country: None (occurrence: None)
  Receive Date: 20100323
  Receipt Date: 20100323
  Transmission Date: 20100710
  Serious: Yes (Hospitalization)
  Sender: FDA-Public Use
  Company Number: None

PATIENT
  Age: 63 Year
  Sex: Male
  Weight: 84.82 kg

DRUGS (1)
  1. CARBOPLATIN [Suspect]
     Indication: PROSTATE CANCER METASTATIC
     Dosage: 700 MG ONCE IV
     Route: 042
     Dates: start: 20090318, end: 20100310

REACTIONS (8)
  - BLOOD PRESSURE IMMEASURABLE [None]
  - COLD SWEAT [None]
  - HYPERHIDROSIS [None]
  - HYPOAESTHESIA [None]
  - HYPOTENSION [None]
  - LETHARGY [None]
  - PALPITATIONS [None]
  - PARAESTHESIA [None]
